FAERS Safety Report 8287063-0 (Version None)
Quarter: 2012Q2

REPORT INFORMATION
  Report Type: 
  Country: None (occurrence: None)
  Receive Date: 20120416
  Receipt Date: 20120124
  Transmission Date: 20120825
  Serious: Yes (Hospitalization)
  Sender: FDA-Public Use
  Company Number: US-ROCHE-1055315

PATIENT
  Sex: Female
  Weight: 69.1 kg

DRUGS (1)
  1. RANIBIZUMAB [Suspect]
     Indication: DIABETIC RETINAL OEDEMA
     Dosage: LAST DOSE PRIOR TO THE EVENT: 17/NOV/2011
     Route: 050
     Dates: start: 20110623

REACTIONS (1)
  - PULMONARY FIBROSIS [None]
